FAERS Safety Report 7767017-0 (Version None)
Quarter: 2011Q3

REPORT INFORMATION
  Report Type: 
  Country: None (occurrence: None)
  Receive Date: 20110922
  Receipt Date: 20110912
  Transmission Date: 20111222
  Serious: Yes (Hospitalization)
  Sender: FDA-Public Use
  Company Number: US-MYLANLABS-2011S1019017

PATIENT
  Age: 78 Year
  Sex: Male

DRUGS (3)
  1. PLAVIX [Concomitant]
  2. ASPIRIN [Concomitant]
  3. WARFARIN SODIUM [Suspect]
     Indication: PERIPHERAL VASCULAR DISORDER
     Dosage: 5 DAYS PER WEEK
     Route: 048
     Dates: end: 20110215

REACTIONS (1)
  - CEREBROVASCULAR ACCIDENT [None]
